FAERS Safety Report 6132054-9 (Version None)
Quarter: 2009Q1

REPORT INFORMATION
  Report Type: 
  Country: None (occurrence: None)
  Receive Date: 20090325
  Receipt Date: 20090314
  Transmission Date: 20090719
  Serious: Yes (Hospitalization)
  Sender: FDA-Public Use
  Company Number: US-PFIZER INC-2007096478

PATIENT
  Sex: Female
  Weight: 76.5 kg

DRUGS (10)
  1. SUTENT [Suspect]
     Indication: THYROID CANCER METASTATIC
     Dosage: 37.5 MG DAILY
     Route: 048
     Dates: start: 20071018, end: 20071115
  2. SUTENT [Suspect]
     Dosage: 25 MG, DAILY
     Route: 048
     Dates: start: 20071128
  3. SYNTHROID [Concomitant]
     Dosage: 117 UG,  DAILY EXCEPT SUNDAYS 112UG
     Route: 048
  4. ATENOLOL [Concomitant]
     Dosage: 25 MG, DAILY
     Route: 048
  5. BECLOMETHASONE DIPROPIONATE [Concomitant]
     Dosage: 40 UG, 2 PUFFS, 2X/DAY
     Route: 055
  6. POTASSIUM CITRATE [Concomitant]
     Dosage: 500 MG, DAILY
     Route: 048
  7. LEXAPRO [Concomitant]
     Dosage: 50 MG, DAILY
     Route: 048
  8. FOLIC ACID [Concomitant]
     Dosage: 0.4 MG, DAILY
     Route: 048
  9. GLUCOSAMINE [Concomitant]
     Dosage: 1500 MG, DAILY
     Route: 048
  10. ASPIRIN [Concomitant]
     Dosage: 81 MG, DAILY
     Route: 048

REACTIONS (3)
  - ATRIAL FIBRILLATION [None]
  - DEHYDRATION [None]
  - DIARRHOEA [None]
